FAERS Safety Report 11628096 (Version 1)
Quarter: 2015Q4

REPORT INFORMATION
  Report Type: Spontaneous
  Country: US (occurrence: None)
  Receive Date: 20151013
  Receipt Date: 20151013
  Transmission Date: 20160304
  Serious: No
  Sender: FDA-Public Use
  Company Number: None

PATIENT
  Age: 43 Year
  Sex: Female
  Weight: 88.91 kg

DRUGS (1)
  1. ARMOUR THYROID [Suspect]
     Active Substance: THYROID, PORCINE\THYROID, UNSPECIFIED
     Dosage: 1
     Route: 048

REACTIONS (4)
  - Product taste abnormal [None]
  - Product formulation issue [None]
  - Drug ineffective [None]
  - Product odour abnormal [None]

NARRATIVE: CASE EVENT DATE: 20151001
